FAERS Safety Report 9735476 (Version 2)
Quarter: 2015Q3

REPORT INFORMATION
  Report Type: Spontaneous
  Country: US (occurrence: US)
  Receive Date: 20131206
  Receipt Date: 20150804
  Transmission Date: 20151125
  Serious: No
  Sender: FDA-Public Use
  Company Number: US-GILEAD-2009-0023322

PATIENT
  Age: 75 Year
  Sex: Female
  Weight: 75.3 kg

DRUGS (11)
  1. LISINOPRIL-HCTZ [Concomitant]
     Active Substance: HYDROCHLOROTHIAZIDE\LISINOPRIL
  2. LETAIRIS [Suspect]
     Active Substance: AMBRISENTAN
     Indication: PULMONARY ARTERIAL HYPERTENSION
     Route: 048
     Dates: start: 20090618
  3. CELEBREX [Concomitant]
     Active Substance: CELECOXIB
  4. PROZAC [Concomitant]
     Active Substance: FLUOXETINE HYDROCHLORIDE
  5. TRAMADOL. [Concomitant]
     Active Substance: TRAMADOL
  6. ZOCOR [Concomitant]
     Active Substance: SIMVASTATIN
  7. DICYCLOMINE [Concomitant]
     Active Substance: DICYCLOMINE HYDROCHLORIDE
  8. HYDROXCHLOROQUINE [Concomitant]
     Active Substance: HYDROXYCHLOROQUINE
  9. ATENOLOL. [Concomitant]
     Active Substance: ATENOLOL
  10. KLOR-CON [Concomitant]
     Active Substance: POTASSIUM CHLORIDE
  11. NIFEDIPINE ER [Concomitant]
     Active Substance: NIFEDIPINE

REACTIONS (4)
  - Nightmare [Unknown]
  - Fatigue [Unknown]
  - Hypotension [Unknown]
  - Insomnia [Unknown]
